FAERS Safety Report 9262088 (Version 1)
Quarter: 2013Q2

REPORT INFORMATION
  Report Type: Spontaneous
  Country: BR (occurrence: BR)
  Receive Date: 20130430
  Receipt Date: 20130430
  Transmission Date: 20140414
  Serious: Yes (Other)
  Sender: FDA-Public Use
  Company Number: BR-AMGEN-BRASP2013029591

PATIENT
  Age: 52 Year
  Sex: Male
  Weight: 77 kg

DRUGS (4)
  1. ENBREL [Suspect]
     Indication: RHEUMATOID ARTHRITIS
     Dosage: 50 MG, 1X/WEEK
     Route: 058
     Dates: start: 201109, end: 201304
  2. METHOTREXATE [Concomitant]
     Dosage: 20 MG, 1X/DAY
  3. ARAVA [Concomitant]
     Dosage: 1 DF, 1X/DAY
  4. PREDNISONE [Concomitant]
     Dosage: 5 MG, 1X/DAY

REACTIONS (3)
  - Accident [Unknown]
  - Lower limb fracture [Unknown]
  - Pruritus [Unknown]
